FAERS Safety Report 23832442 (Version 1)
Quarter: 2024Q2

REPORT INFORMATION
  Report Type: Spontaneous
  Country: US (occurrence: None)
  Receive Date: 20240507
  Receipt Date: 20240507
  Transmission Date: 20240716
  Serious: No
  Sender: FDA-Public Use
  Company Number: None

PATIENT
  Age: 54 Year
  Sex: Male
  Weight: 68.4 kg

DRUGS (2)
  1. RISPERIDONE [Suspect]
     Active Substance: RISPERIDONE
     Indication: Psychotic disorder
     Dates: start: 20230719, end: 20230727
  2. MIRTAZAPINE [Suspect]
     Active Substance: MIRTAZAPINE
     Dosage: 15 MG HS PO
     Route: 048
     Dates: start: 20230724, end: 20230728

REACTIONS (4)
  - Agitation [None]
  - Confusional state [None]
  - Extrapyramidal disorder [None]
  - Hallucination [None]

NARRATIVE: CASE EVENT DATE: 20230724
